FAERS Safety Report 17170896 (Version 1)
Quarter: 2019Q4

REPORT INFORMATION
  Report Type: Spontaneous
  Country: US (occurrence: US)
  Receive Date: 20191218
  Receipt Date: 20191218
  Transmission Date: 20200122
  Serious: Yes (Hospitalization)
  Sender: FDA-Public Use
  Company Number: US-MYLANLABS-2019M1125947

PATIENT
  Age: 9 Month
  Sex: Male
  Weight: 6.3 kg

DRUGS (5)
  1. FENTANYL. [Suspect]
     Active Substance: FENTANYL
     Indication: POSTOPERATIVE ANALGESIA
     Dosage: ADMINISTERED OVER POST....
     Route: 042
  2. DEXMEDETOMIDINE. [Concomitant]
     Active Substance: DEXMEDETOMIDINE
     Indication: POSTOPERATIVE ANALGESIA
     Dosage: ADMINISTERED OVER POST....
     Route: 065
  3. MORPHINE [Suspect]
     Active Substance: MORPHINE
     Dosage: DOSE: 0.1 MG/KG/DOSE EVERY...
     Route: 065
  4. MORPHINE [Suspect]
     Active Substance: MORPHINE
     Indication: POSTOPERATIVE ANALGESIA
     Dosage: ADMINISTERED OVER POST..
     Route: 065
  5. METHADONE [Suspect]
     Active Substance: METHADONE HYDROCHLORIDE
     Indication: POSTOPERATIVE ANALGESIA
     Dosage: ADMINISTERED OVE....
     Route: 065

REACTIONS (1)
  - Postoperative ileus [Recovered/Resolved]
